FAERS Safety Report 11055236 (Version 1)
Quarter: 2015Q2

REPORT INFORMATION
  Report Type: Spontaneous
  Country: US (occurrence: None)
  Receive Date: 20150421
  Receipt Date: 20150421
  Transmission Date: 20150821
  Serious: No
  Sender: FDA-Public Use
  Company Number: None

PATIENT
  Age: 61 Year
  Sex: Female
  Weight: 68.8 kg

DRUGS (2)
  1. TAXOTERE [Suspect]
     Active Substance: DOCETAXEL
     Dates: end: 20150302
  2. ERBITUX [Suspect]
     Active Substance: CETUXIMAB
     Dates: end: 20150302

REACTIONS (2)
  - Lymphocyte count decreased [None]
  - Skin disorder [None]

NARRATIVE: CASE EVENT DATE: 20150309
